FAERS Safety Report 10541955 (Version 1)
Quarter: 2014Q4

REPORT INFORMATION
  Report Type: Spontaneous
  Country: US (occurrence: US)
  Receive Date: 20141024
  Receipt Date: 20141024
  Transmission Date: 20150529
  Serious: No
  Sender: FDA-Public Use
  Company Number: US-NOVEN-14US010057

PATIENT
  Sex: Female

DRUGS (8)
  1. BUSPAR [Concomitant]
     Active Substance: BUSPIRONE HYDROCHLORIDE
     Indication: DEPRESSION
     Dosage: 20 MG, QD
     Route: 048
  2. DOXYCYCLINE. [Concomitant]
     Active Substance: DOXYCYCLINE
     Indication: ROSACEA
     Dosage: 100 MG, QD
     Route: 048
  3. BUPROPION [Concomitant]
     Active Substance: BUPROPION
     Indication: DEPRESSION
     Dosage: 150 MG, QD
     Route: 048
  4. BRISDELLE [Suspect]
     Active Substance: PAROXETINE MESYLATE
     Indication: HOT FLUSH
     Dosage: 7.5 MG, UNK
     Route: 048
     Dates: start: 201404
  5. FLUNISOLIDE. [Concomitant]
     Active Substance: FLUNISOLIDE
     Indication: RHINITIS
     Dosage: 0.75 %, PRN
     Route: 055
  6. METROGEL [Concomitant]
     Active Substance: METRONIDAZOLE
     Indication: ROSACEA
     Dosage: 1 %, UNK
     Route: 061
  7. CLONAPIN [Concomitant]
     Active Substance: CLONAZEPAM
     Indication: MENOPAUSE
     Dosage: 0.5 MG, PRN
     Route: 048
  8. RESTASIS [Concomitant]
     Active Substance: CYCLOSPORINE
     Indication: DRY EYE
     Dosage: UNK
     Route: 047

REACTIONS (3)
  - Hyperhidrosis [Not Recovered/Not Resolved]
  - Drug ineffective [Not Recovered/Not Resolved]
  - Product quality issue [Not Recovered/Not Resolved]

NARRATIVE: CASE EVENT DATE: 201401
